FAERS Safety Report 16700155 (Version 1)
Quarter: 2019Q3

REPORT INFORMATION
  Report Type: Report from Study
  Country: CA (occurrence: CA)
  Receive Date: 20190813
  Receipt Date: 20190813
  Transmission Date: 20191004
  Serious: Yes (Other)
  Sender: FDA-Public Use
  Company Number: PHHY2018CA031489

PATIENT
  Sex: Female

DRUGS (4)
  1. VALTREX [Concomitant]
     Active Substance: VALACYCLOVIR HYDROCHLORIDE
     Indication: PRODUCT USED FOR UNKNOWN INDICATION
     Route: 065
  2. LOSARTAN. [Concomitant]
     Active Substance: LOSARTAN
     Indication: PRODUCT USED FOR UNKNOWN INDICATION
     Route: 065
  3. GILENYA [Suspect]
     Active Substance: FINGOLIMOD HYDROCHLORIDE
     Indication: MULTIPLE SCLEROSIS
     Dosage: 0.5 MG, QD
     Route: 048
     Dates: start: 2007
  4. GILENYA [Suspect]
     Active Substance: FINGOLIMOD HYDROCHLORIDE
     Dosage: 0.5 MG, QOD
     Route: 048

REACTIONS (13)
  - Intention tremor [Unknown]
  - Pericarditis [Unknown]
  - Eye infection [Unknown]
  - Meningioma [Unknown]
  - Lymphocyte count decreased [Not Recovered/Not Resolved]
  - Molluscum contagiosum [Unknown]
  - Prescribed underdose [Unknown]
  - Facial paralysis [Unknown]
  - Upper motor neurone lesion [Not Recovered/Not Resolved]
  - Tandem gait test abnormal [Unknown]
  - Acarodermatitis [Unknown]
  - Marfan^s syndrome [Recovered/Resolved]
  - Perineurial cyst [Unknown]

NARRATIVE: CASE EVENT DATE: 2017
